FAERS Safety Report 15371816 (Version 1)
Quarter: 2018Q3

REPORT INFORMATION
  Report Type: Spontaneous
  Country: NO (occurrence: NO)
  Receive Date: 20180911
  Receipt Date: 20180911
  Transmission Date: 20181010
  Serious: Yes (Life-Threatening)
  Sender: FDA-Public Use
  Company Number: NO-TEVA-2018-NO-953598

PATIENT
  Age: 56 Year
  Sex: Female

DRUGS (15)
  1. CIPRALEX [Suspect]
     Active Substance: ESCITALOPRAM OXALATE
     Indication: MENTAL DISORDER
     Route: 048
  2. REMERON [Suspect]
     Active Substance: MIRTAZAPINE
     Indication: MENTAL DISORDER
     Route: 048
  3. IBUX [Suspect]
     Active Substance: IBUPROFEN
     Indication: MENTAL DISORDER
     Route: 048
  4. NOZINAN [Suspect]
     Active Substance: LEVOMEPROMAZINE
     Indication: MENTAL DISORDER
     Route: 048
  5. ABILIFY [Suspect]
     Active Substance: ARIPIPRAZOLE
     Indication: MENTAL DISORDER
     Route: 048
  6. FLUANXOL [Suspect]
     Active Substance: FLUPENTIXOL
     Indication: MENTAL DISORDER
     Route: 048
  7. CYMBALTA [Suspect]
     Active Substance: DULOXETINE HYDROCHLORIDE
     Indication: MENTAL DISORDER
     Route: 048
  8. VALLERGAN [Suspect]
     Active Substance: TRIMEPRAZINE
     Indication: MENTAL DISORDER
     Route: 048
  9. EFEXOR DEPOT [Suspect]
     Active Substance: VENLAFAXINE HYDROCHLORIDE
     Indication: MENTAL DISORDER
     Route: 048
  10. SOBRIL [Suspect]
     Active Substance: OXAZEPAM
     Indication: MENTAL DISORDER
     Route: 048
  11. FLUOXETINE [Suspect]
     Active Substance: FLUOXETINE HYDROCHLORIDE
     Indication: MENTAL DISORDER
     Route: 048
  12. TRILAFON [Suspect]
     Active Substance: PERPHENAZINE
     Indication: MENTAL DISORDER
     Route: 048
  13. STEMETIL [Suspect]
     Active Substance: PROCHLORPERAZINE MALEATE
     Indication: MENTAL DISORDER
     Route: 048
  14. ZYPREXA [Suspect]
     Active Substance: OLANZAPINE
     Indication: MENTAL DISORDER
     Route: 048
  15. TRUXAL [Suspect]
     Active Substance: CHLORPROTHIXENE
     Indication: MENTAL DISORDER
     Route: 048

REACTIONS (10)
  - Pyrexia [Recovered/Resolved]
  - Hyperhidrosis [Recovered/Resolved]
  - Tremor [Recovered/Resolved]
  - Muscle rigidity [Recovered/Resolved]
  - Decreased appetite [Recovered/Resolved with Sequelae]
  - Neuroleptic malignant syndrome [Recovered/Resolved]
  - Vomiting [Recovered/Resolved]
  - Haemorrhage [Recovered/Resolved]
  - Dehydration [Recovered/Resolved]
  - Nausea [Recovered/Resolved]
